FAERS Safety Report 9161131 (Version 1)
Quarter: 2013Q1

REPORT INFORMATION
  Report Type: Report from Study
  Country: US (occurrence: US)
  Receive Date: 20130313
  Receipt Date: 20130313
  Transmission Date: 20140127
  Serious: Yes (Other)
  Sender: FDA-Public Use
  Company Number: US-009507513-1303USA003427

PATIENT
  Sex: Male

DRUGS (6)
  1. BOCEPREVIR [Suspect]
     Indication: HEPATITIS C
     Dosage: 3 DF, QD
     Route: 048
  2. RIBAVIRIN [Suspect]
     Indication: HEPATITIS C
     Dosage: 1200MG,QD,DIVIDED DOSES(1000MG)
     Route: 065
     Dates: start: 20120220
  3. RIBAVIRIN [Suspect]
     Dosage: 1200MG,QD,DIVIDED DOSES(1000MG)
     Route: 065
     Dates: start: 20120223
  4. RIBAVIRIN [Suspect]
     Dosage: DIVIDED DOSES (1000 MG)
  5. PEGINTERFERON ALFA-2A [Suspect]
     Indication: HEPATITIS C
     Dosage: 180 MICROGRAM, QW (180 MICROGRAM, 1D)
     Dates: start: 20120220, end: 20120223
  6. PEGINTERFERON ALFA-2A [Suspect]
     Dosage: 180 MICROGRAM, QW (180 MICROGRAM, 1D)
     Dates: start: 20120223

REACTIONS (32)
  - Self injurious behaviour [Unknown]
  - Faeces discoloured [Unknown]
  - Abdominal pain [Unknown]
  - Ulcer haemorrhage [Unknown]
  - Virologic failure [Unknown]
  - Type 2 diabetes mellitus [Unknown]
  - Costochondritis [Unknown]
  - Pain [Unknown]
  - Emotional distress [Unknown]
  - Depression [Unknown]
  - Anger [Unknown]
  - Irritability [Unknown]
  - Insomnia [Unknown]
  - Weight decreased [Unknown]
  - Tearfulness [Unknown]
  - Agitation [Unknown]
  - Mood swings [Unknown]
  - Oropharyngeal pain [Unknown]
  - Pain [Unknown]
  - Tinnitus [Unknown]
  - Pyrexia [Unknown]
  - Cystitis [Unknown]
  - Nausea [Unknown]
  - Vomiting [Unknown]
  - Pain [Unknown]
  - White blood cell count decreased [Unknown]
  - Dysuria [Unknown]
  - Dysuria [Unknown]
  - Fatigue [Unknown]
  - Anaemia [Unknown]
  - Feeling abnormal [Unknown]
  - Gastric disorder [Unknown]
